FAERS Safety Report 5865274-9 (Version None)
Quarter: 2008Q3

REPORT INFORMATION
  Report Type: 
  Country: None (occurrence: None)
  Receive Date: 20080829
  Receipt Date: 20080421
  Transmission Date: 20090109
  Serious: No
  Sender: FDA-Public Use
  Company Number: A0723867A

PATIENT
  Age: 67 Year
  Sex: Male

DRUGS (2)
  1. BECONASE [Suspect]
     Indication: CHRONIC SINUSITIS
     Route: 045
     Dates: start: 20080414, end: 20080415
  2. CLINDAMYCIN [Concomitant]

REACTIONS (1)
  - EPISTAXIS [None]
